FAERS Safety Report 22022128 (Version 1)
Quarter: 2023Q1

REPORT INFORMATION
  Report Type: Report from Study
  Country: CO (occurrence: CO)
  Receive Date: 20230222
  Receipt Date: 20230222
  Transmission Date: 20230417
  Serious: Yes (Other)
  Sender: FDA-Public Use
  Company Number: CO-BAYER-2023A021823

PATIENT
  Age: 25 Year
  Sex: Female

DRUGS (2)
  1. MIRENA [Suspect]
     Active Substance: LEVONORGESTREL
     Indication: Prevention of endometrial hyperplasia
     Dosage: 20?G/DAY
     Route: 015
     Dates: start: 20220617, end: 202212
  2. MIRENA [Suspect]
     Active Substance: LEVONORGESTREL
     Indication: Contraception

REACTIONS (4)
  - Genital haemorrhage [None]
  - Blood loss anaemia [None]
  - Abdominal pain [None]
  - Dysmenorrhoea [None]

NARRATIVE: CASE EVENT DATE: 20220801
